FAERS Safety Report 17773061 (Version 1)
Quarter: 2020Q2

REPORT INFORMATION
  Report Type: Report from Study
  Country: CZ (occurrence: CZ)
  Receive Date: 20200512
  Receipt Date: 20200512
  Transmission Date: 20200714
  Serious: Yes (Death, Other)
  Sender: FDA-Public Use
  Company Number: CZ-INCYTE CORPORATION-2018IN011617

PATIENT

DRUGS (2)
  1. JAKAVI [Suspect]
     Active Substance: RUXOLITINIB
     Indication: PRODUCT USED FOR UNKNOWN INDICATION
     Dosage: 15 MG, BID
     Route: 065
     Dates: start: 20170824
  2. JAKAVI [Suspect]
     Active Substance: RUXOLITINIB
     Dosage: UNK
     Route: 065

REACTIONS (4)
  - Myeloproliferative neoplasm [Fatal]
  - Disease progression [Unknown]
  - Anaemia [Unknown]
  - Treatment failure [Unknown]

NARRATIVE: CASE EVENT DATE: 20171116
